FAERS Safety Report 5532174-3 (Version None)
Quarter: 2007Q4

REPORT INFORMATION
  Report Type: 
  Country: None (occurrence: None)
  Receive Date: 20071203
  Receipt Date: 20071114
  Transmission Date: 20080405
  Serious: Yes (Life-Threatening)
  Sender: FDA-Public Use
  Company Number: JP-ASTRAZENECA-2007AP06086

PATIENT
  Age: 6054 Day
  Sex: Female

DRUGS (7)
  1. SEROQUEL [Suspect]
     Indication: SCHIZOPHRENIA
     Route: 048
     Dates: start: 20070827, end: 20070905
  2. SEROQUEL [Suspect]
     Route: 048
     Dates: start: 20070906, end: 20070911
  3. ZYPREXA [Concomitant]
     Indication: SCHIZOPHRENIA
     Route: 048
     Dates: start: 20070816
  4. AKINETON [Concomitant]
     Indication: PARKINSONISM
     Route: 048
     Dates: start: 20070730, end: 20070911
  5. FLUNITRAZEPAM [Concomitant]
     Indication: INSOMNIA
     Route: 048
     Dates: start: 20070730
  6. SOLANAX [Concomitant]
     Route: 048
  7. VITAMIN PREPARATIONS [Concomitant]
     Route: 048

REACTIONS (1)
  - STEVENS-JOHNSON SYNDROME [None]
